FAERS Safety Report 7939811-4 (Version None)
Quarter: 2011Q4

REPORT INFORMATION
  Report Type: 
  Country: None (occurrence: None)
  Receive Date: 20111125
  Receipt Date: 20111122
  Transmission Date: 20120403
  Serious: No
  Sender: FDA-Public Use
  Company Number: PHHY2009BR00582

PATIENT
  Sex: Female
  Weight: 70 kg

DRUGS (2)
  1. FERROUS SULFATE TAB [Concomitant]
  2. PARLODEL [Suspect]
     Indication: BLOOD PROLACTIN INCREASED
     Dosage: 1 DF, PER DAY
     Route: 048
     Dates: start: 20081217, end: 20090104

REACTIONS (3)
  - BREAST FEEDING [None]
  - MATERNAL EXPOSURE DURING PREGNANCY [None]
  - NORMAL NEWBORN [None]
